FAERS Safety Report 20487108 (Version 2)
Quarter: 2022Q1

REPORT INFORMATION
  Report Type: Spontaneous
  Country: US (occurrence: US)
  Receive Date: 20220217
  Receipt Date: 20220301
  Transmission Date: 20220423
  Serious: No
  Sender: FDA-Public Use
  Company Number: US-SA-SAC20220214000415

PATIENT
  Age: 11 Year
  Sex: Female

DRUGS (1)
  1. DUPIXENT [Suspect]
     Active Substance: DUPILUMAB
     Dosage: 300 MG, FREQUENCY: OTHER
     Route: 058
     Dates: start: 20211110

REACTIONS (5)
  - Vision blurred [Unknown]
  - Sleep disorder [Unknown]
  - Poor quality sleep [Unknown]
  - Insomnia [Unknown]
  - Device use issue [Unknown]

NARRATIVE: CASE EVENT DATE: 20211110
